FAERS Safety Report 16525767 (Version 1)
Quarter: 2019Q3

REPORT INFORMATION
  Report Type: Spontaneous
  Country: US (occurrence: US)
  Receive Date: 20190703
  Receipt Date: 20190703
  Transmission Date: 20191004
  Serious: Yes (Hospitalization, Other)
  Sender: FDA-Public Use
  Company Number: US-SUN PHARMACEUTICAL INDUSTRIES LTD-2018R1-195275

PATIENT
  Age: 22 Year
  Sex: Female

DRUGS (1)
  1. RISPERIDONE. [Suspect]
     Active Substance: RISPERIDONE
     Indication: PSYCHOTIC DISORDER
     Dosage: 0.25 MG IN THE MORNING AND 0.5 MG AT NIGHT,
     Route: 065

REACTIONS (8)
  - Treatment noncompliance [Unknown]
  - Amenorrhoea [Unknown]
  - Confusional state [Unknown]
  - Hallucinations, mixed [Recovering/Resolving]
  - Blood prolactin increased [Unknown]
  - Schizophrenia [Unknown]
  - Agitation [Unknown]
  - Hypertension [Unknown]
